FAERS Safety Report 10475164 (Version 4)
Quarter: 2025Q4

REPORT INFORMATION
  Report Type: Spontaneous
  Country: EU (occurrence: EU)
  Receive Date: 20140925
  Receipt Date: 20251113
  Transmission Date: 20260118
  Serious: Yes (Hospitalization, Other)
  Sender: AUROBINDO
  Company Number: EU-AUROBINDO-AUR-APL-2013-10688

PATIENT
  Age: 76 Year
  Sex: Male

DRUGS (6)
  1. LEVOFLOXACIN [Suspect]
     Active Substance: LEVOFLOXACIN
     Indication: Prophylaxis
     Dosage: UNK
     Route: 065
  2. METFORMIN HYDROCHLORIDE [Suspect]
     Active Substance: METFORMIN HYDROCHLORIDE
     Indication: Type 2 diabetes mellitus
     Dosage: 500 MG, 3 TIMES A DAY
     Route: 065
  3. GLICLAZIDE [Concomitant]
     Active Substance: GLICLAZIDE
     Indication: Product used for unknown indication
     Dosage: 30 MG, ONCE A DAY
     Route: 065
  4. HYDROCHLOROTHIAZIDE\OLMESARTAN MEDOXOMIL [Concomitant]
     Active Substance: HYDROCHLOROTHIAZIDE\OLMESARTAN MEDOXOMIL
     Indication: Product used for unknown indication
     Dosage: 20/12.5 MG, ONCE A DAY
     Route: 065
  5. BISOPROLOL [Concomitant]
     Active Substance: BISOPROLOL
     Indication: Product used for unknown indication
     Dosage: 1.25 MG, ONCE A DAY
     Route: 065
  6. SIMVASTATIN [Concomitant]
     Active Substance: SIMVASTATIN
     Indication: Product used for unknown indication
     Dosage: 20 MG, ONCE A DAY
     Route: 065

REACTIONS (11)
  - Toxicity to various agents [Recovered/Resolved]
  - Tubulointerstitial nephritis [Recovered/Resolved]
  - Metabolic acidosis [Unknown]
  - Hypoglycaemia [Unknown]
  - Anion gap increased [Unknown]
  - Hyperlactacidaemia [Unknown]
  - Lethargy [Unknown]
  - Disorientation [Unknown]
  - Sepsis [Unknown]
  - Urinary tract infection [Unknown]
  - Clostridium difficile colitis [Unknown]
